FAERS Safety Report 9577717 (Version 3)
Quarter: 2014Q1

REPORT INFORMATION
  Report Type: Report from Study
  Country: BE (occurrence: BE)
  Receive Date: 20131001
  Receipt Date: 20140226
  Transmission Date: 20141002
  Serious: Yes (Death, Hospitalization, Other)
  Sender: FDA-Public Use
  Company Number: BE-BRISTOL-MYERS SQUIBB COMPANY-17293630

PATIENT
  Age: 59 Year
  Sex: Female
  Weight: 85.4 kg

DRUGS (16)
  1. PACLITAXEL [Suspect]
     Indication: BREAST CANCER METASTATIC
     Dosage: 1 DF: 90UNITS NOS?LAST DOSE PRIOR TO SAE: 03FEB2010
     Route: 042
     Dates: start: 20091125, end: 20100203
  2. BEVACIZUMAB [Suspect]
     Indication: BREAST CANCER METASTATIC
     Dosage: 1 DF: 10UNITS NOS?LAST DOSE PRIOR TO SAE: 03FEB2010
     Route: 042
     Dates: start: 20091223, end: 20100203
  3. LASIX [Concomitant]
     Indication: DYSPNOEA
     Route: 048
     Dates: start: 20100220
  4. INNOHEP [Concomitant]
     Indication: PULMONARY EMBOLISM
     Dosage: 1DF=14000 IU
     Route: 058
     Dates: start: 20100220
  5. TRITACE [Concomitant]
     Indication: DYSPNOEA
     Route: 048
     Dates: start: 20100225
  6. EMCONCOR [Concomitant]
     Indication: DYSPNOEA
     Route: 048
     Dates: start: 20100225
  7. SERLAIN [Concomitant]
  8. ZOLPIDEM [Concomitant]
     Indication: INSOMNIA
     Route: 048
  9. DAFALGAN [Concomitant]
     Indication: PAIN
     Route: 048
  10. ZYRTEC [Concomitant]
     Indication: HYPERSENSITIVITY
     Route: 048
     Dates: start: 20091124
  11. DEXAMETHASONE [Concomitant]
     Indication: HYPERSENSITIVITY
     Route: 048
     Dates: start: 20091124
  12. HYDROCORTISONE [Concomitant]
     Indication: STOMATITIS
     Dosage: 1DF- 1 TABLE SPOON
     Route: 048
     Dates: start: 20100203
  13. LIDOCAINE [Concomitant]
     Indication: STOMATITIS
     Dosage: 1DF- 1 TABLE SPOON
     Route: 048
     Dates: start: 20100203
  14. NYSTATIN [Concomitant]
     Indication: STOMATITIS
     Dosage: 1DF- 1 TABLE SPOON
     Route: 048
     Dates: start: 20100203
  15. DEXTROMETHORPHAN HYDROBROMIDE [Concomitant]
     Indication: NASOPHARYNGITIS
     Route: 048
     Dates: start: 20100203
  16. MEDROL [Concomitant]
     Indication: DYSPNOEA
     Route: 048
     Dates: start: 20100224

REACTIONS (4)
  - Cardiac failure [Fatal]
  - Left ventricular dysfunction [Fatal]
  - Pulmonary embolism [Not Recovered/Not Resolved]
  - Dyspnoea [Unknown]
